FAERS Safety Report 5325792-9 (Version None)
Quarter: 2007Q2

REPORT INFORMATION
  Report Type: 
  Country: None (occurrence: None)
  Receive Date: 20070510
  Receipt Date: 20070426
  Transmission Date: 20071010
  Serious: Yes (Hospitalization)
  Sender: FDA-Public Use
  Company Number: URSO-2007-120

PATIENT
  Age: 62 Year
  Sex: Female

DRUGS (6)
  1. URSODIOL [Suspect]
     Indication: CHOLANGITIS SCLEROSING
     Dosage: 750MG ORAL
     Route: 048
     Dates: start: 20060101
  2. IMURAN [Suspect]
     Indication: ENTEROCOLITIS HAEMORRHAGIC
     Dosage: 75MG ORAL
     Route: 048
     Dates: start: 20061201, end: 20070212
  3. INEXIUM (ESOMEPRAZOLE) [Suspect]
     Dosage: 40MG ORAL
     Route: 048
  4. PENTASA [Suspect]
     Dosage: 3G ORAL
     Route: 048
  5. FOSAMAX [Suspect]
     Dosage: 1 DOSE/WEEK ORAL
     Route: 048
  6. CETIRIZINE HCL [Suspect]
     Dosage: 1 DOSE

REACTIONS (5)
  - HYPOPLASTIC ANAEMIA [None]
  - NO THERAPEUTIC RESPONSE [None]
  - PLATELET COUNT DECREASED [None]
  - PLATELET COUNT INCREASED [None]
  - PROCTOCOLITIS [None]
